FAERS Safety Report 4526743-7 (Version None)
Quarter: 2004Q4

REPORT INFORMATION
  Report Type: 
  Country: None (occurrence: None)
  Receive Date: 20041214
  Receipt Date: 20041207
  Transmission Date: 20050328
  Serious: Yes (Life-Threatening, Other)
  Sender: FDA-Public Use
  Company Number: US-BRISTOL-MYERS SQUIBB COMPANY-12788907

PATIENT
  Age: 80 Year
  Sex: Male
  Weight: 88 kg

DRUGS (8)
  1. ERBITUX [Suspect]
     Indication: COLON CANCER METASTATIC
     Route: 042
     Dates: start: 20041207, end: 20041207
  2. BENADRYL [Concomitant]
     Indication: PREMEDICATION
     Route: 042
     Dates: start: 20041207, end: 20041207
  3. DECADRON [Concomitant]
     Indication: PREMEDICATION
     Route: 048
     Dates: start: 20041207, end: 20041207
  4. KYTRIL [Concomitant]
     Indication: PREMEDICATION
     Route: 042
     Dates: start: 20041207, end: 20041207
  5. ASPIRIN [Concomitant]
  6. DILACOR XR [Concomitant]
  7. HYDROCHLOROTHIAZIDE [Concomitant]
  8. PROSCAR [Concomitant]

REACTIONS (7)
  - BLOOD PRESSURE IMMEASURABLE [None]
  - COMA [None]
  - ERYTHEMA [None]
  - EYE ROLLING [None]
  - FEELING HOT [None]
  - OXYGEN SATURATION DECREASED [None]
  - URINARY INCONTINENCE [None]
